FAERS Safety Report 7295806-8 (Version None)
Quarter: 2011Q1

REPORT INFORMATION
  Report Type: 
  Country: None (occurrence: None)
  Receive Date: 20110216
  Receipt Date: 20110210
  Transmission Date: 20110831
  Serious: No
  Sender: FDA-Public Use
  Company Number: US-ABBOTT-11P-163-0703979-00

PATIENT
  Sex: Female
  Weight: 90.8 kg

DRUGS (3)
  1. SIMCOR [Suspect]
     Indication: STENT PLACEMENT
     Dosage: DAILY AT BEDTIME
     Dates: end: 20101201
  2. ASPIRIN [Concomitant]
     Indication: PRODUCT USED FOR UNKNOWN INDICATION
     Dosage: IN THE MORNING
  3. EFFIENT [Concomitant]
     Indication: PRODUCT USED FOR UNKNOWN INDICATION

REACTIONS (3)
  - FLUSHING [None]
  - SKIN BURNING SENSATION [None]
  - PRURITUS [None]
